FAERS Safety Report 10160668 (Version 2)
Quarter: 2015Q1

REPORT INFORMATION
  Report Type: Report from Study
  Country: DE (occurrence: DE)
  Receive Date: 20140508
  Receipt Date: 20150129
  Transmission Date: 20150720
  Serious: Yes (Hospitalization)
  Sender: FDA-Public Use
  Company Number: DE-ASTRAZENECA-2014SE29663

PATIENT
  Age: 80 Year
  Sex: Male
  Weight: 80 kg

DRUGS (4)
  1. TAMSULOSIN [Concomitant]
     Active Substance: TAMSULOSIN
     Route: 048
  2. ATORVASTATIN [Concomitant]
     Active Substance: ATORVASTATIN
     Dates: start: 20140414
  3. TICAGRELOR [Suspect]
     Active Substance: TICAGRELOR
     Indication: ISCHAEMIA
     Route: 048
     Dates: start: 20140415
  4. TICAGRELOR [Suspect]
     Active Substance: TICAGRELOR
     Indication: ISCHAEMIA
     Route: 048
     Dates: start: 20140414, end: 20140414

REACTIONS (2)
  - Speech disorder [None]
  - Loss of consciousness [Not Recovered/Not Resolved]

NARRATIVE: CASE EVENT DATE: 20140430
